FAERS Safety Report 7232368-5 (Version None)
Quarter: 2011Q1

REPORT INFORMATION
  Report Type: 
  Country: None (occurrence: None)
  Receive Date: 20110119
  Receipt Date: 20110111
  Transmission Date: 20110831
  Serious: Yes (Other)
  Sender: FDA-Public Use
  Company Number: US-JNJFOC-20110103968

PATIENT
  Sex: Male
  Weight: 106.14 kg

DRUGS (2)
  1. LEVAQUIN [Suspect]
     Indication: STAPHYLOCOCCAL INFECTION
     Route: 042
  2. STEROIDS NOS [Suspect]
     Indication: RESPIRATORY DISORDER
     Route: 048

REACTIONS (5)
  - RASH [None]
  - ARTHRALGIA [None]
  - TENDON DISORDER [None]
  - THROAT TIGHTNESS [None]
  - DIZZINESS [None]
